FAERS Safety Report 21865813 (Version 1)
Quarter: 2023Q1

REPORT INFORMATION
  Report Type: Spontaneous
  Country: BR (occurrence: BR)
  Receive Date: 20230116
  Receipt Date: 20230116
  Transmission Date: 20230418
  Serious: Yes (Other)
  Sender: FDA-Public Use
  Company Number: BR-MALLINCKRODT-T202300185

PATIENT
  Sex: Female

DRUGS (1)
  1. AMITIZA [Suspect]
     Active Substance: LUBIPROSTONE
     Indication: Irritable bowel syndrome
     Dosage: 2 DOSAGE FORM, QD
     Route: 048

REACTIONS (2)
  - Drug dependence [Unknown]
  - Nervousness [Unknown]
